FAERS Safety Report 9921220 (Version 2)
Quarter: 2014Q1

REPORT INFORMATION
  Report Type: Report from Study
  Country: CO (occurrence: CO)
  Receive Date: 20140225
  Receipt Date: 20140304
  Transmission Date: 20141002
  Serious: Yes (Hospitalization)
  Sender: FDA-Public Use
  Company Number: CO-ASTRAZENECA-2014SE12525

PATIENT
  Age: 23298 Day
  Sex: Male

DRUGS (5)
  1. BRILINTA [Suspect]
     Indication: INFARCTION
     Route: 048
     Dates: start: 20131216, end: 20140210
  2. ASA [Concomitant]
  3. METOPROLOL [Concomitant]
  4. CARVEDILOL [Concomitant]
  5. OMEPRAZOLE [Concomitant]

REACTIONS (1)
  - Acute myocardial infarction [Recovered/Resolved]
